FAERS Safety Report 11218753 (Version 7)
Quarter: 2015Q3

REPORT INFORMATION
  Report Type: Report from Study
  Country: EC (occurrence: EC)
  Receive Date: 20150625
  Receipt Date: 20150827
  Transmission Date: 20151125
  Serious: Yes (Life-Threatening, Hospitalization)
  Sender: FDA-Public Use
  Company Number: PHHY2015EC076784

PATIENT
  Age: 63 Year
  Sex: Female

DRUGS (5)
  1. AFINITOR [Suspect]
     Active Substance: EVEROLIMUS
     Indication: BREAST CANCER
     Dosage: 1 DF (OF 10 MG), QD
     Route: 048
     Dates: start: 20141201, end: 201503
  2. AFINITOR [Suspect]
     Active Substance: EVEROLIMUS
     Indication: TUBEROUS SCLEROSIS
     Dosage: 1 DF (OF 10 MG), QD
     Route: 048
     Dates: start: 201504
  3. AFINITOR [Suspect]
     Active Substance: EVEROLIMUS
     Dosage: 0.5 DF (OF 10 MG), QD
     Route: 048
     Dates: start: 20150623, end: 20150810
  4. AROMASIN [Concomitant]
     Active Substance: EXEMESTANE
     Indication: BREAST CANCER
     Dosage: 25 MG, QD
     Route: 065
  5. INSULIN [Concomitant]
     Active Substance: INSULIN NOS
     Indication: DIABETES MELLITUS
     Route: 065

REACTIONS (7)
  - Influenza [Recovering/Resolving]
  - Respiratory tract congestion [Not Recovered/Not Resolved]
  - Diabetic coma [Recovered/Resolved]
  - Off label use [Unknown]
  - Oropharyngeal pain [Unknown]
  - Cough [Not Recovered/Not Resolved]
  - Dysphonia [Unknown]

NARRATIVE: CASE EVENT DATE: 20150315
